FAERS Safety Report 6062793-X (Version None)
Quarter: 2009Q1

REPORT INFORMATION
  Report Type: 
  Country: None (occurrence: None)
  Receive Date: 20090203
  Receipt Date: 20090126
  Transmission Date: 20090719
  Serious: Yes (Life-Threatening)
  Sender: FDA-Public Use
  Company Number: US-AVENTIS-200910949GDDC

PATIENT

DRUGS (2)
  1. TAXOTERE [Suspect]
     Route: 042
  2. INVESTIGATIONAL DRUG [Suspect]
     Route: 048

REACTIONS (1)
  - INTERNATIONAL NORMALISED RATIO INCREASED [None]
